FAERS Safety Report 4381749-6 (Version None)
Quarter: 2004Q2

REPORT INFORMATION
  Report Type: 
  Country: None (occurrence: None)
  Receive Date: 20040615
  Receipt Date: 20040602
  Transmission Date: 20050107
  Serious: Yes (Hospitalization, Other)
  Sender: FDA-Public Use
  Company Number: NSADSS2001027044

PATIENT
  Age: 72 Year
  Sex: Female
  Weight: 50 kg

DRUGS (3)
  1. REMICADE [Suspect]
     Indication: RHEUMATOID ARTHRITIS
     Dosage: 150 MG, 1 IN 1 AS NECCESSARY, INTRAVENOUS DRIP
     Route: 041
     Dates: start: 20000614, end: 20010627
  2. METHOTREXATE [Suspect]
     Indication: RHEUMATOID ARTHRITIS
     Dosage: 10 MG, INTRAMUSCULAR
     Route: 030
     Dates: start: 20000601
  3. PREDNISONE TAB [Concomitant]

REACTIONS (1)
  - PNEUMONIA LEGIONELLA [None]
